FAERS Safety Report 7085025-2 (Version None)
Quarter: 2010Q4

REPORT INFORMATION
  Report Type: 
  Country: None (occurrence: None)
  Receive Date: 20101105
  Receipt Date: 20101025
  Transmission Date: 20110411
  Serious: Yes (Other)
  Sender: FDA-Public Use
  Company Number: CA-JNJFOC-20101007586

PATIENT
  Sex: Female
  Weight: 59.42 kg

DRUGS (13)
  1. REMICADE [Suspect]
     Indication: DERMATOMYOSITIS
     Route: 042
  2. REMICADE [Suspect]
     Route: 042
  3. PREDNISONE [Concomitant]
  4. PRILOSEC [Concomitant]
  5. FENTANYL [Concomitant]
  6. VITAMIN D [Concomitant]
     Dosage: DOSE IS 2000 U
  7. CALCIUM [Concomitant]
  8. COUMADIN [Concomitant]
  9. VITAMIN B12 AND FOLIC ACID [Concomitant]
  10. FOLIC ACID [Concomitant]
  11. GRAVOL TAB [Concomitant]
  12. ATIVAN [Concomitant]
     Route: 060
  13. MORPHINE [Concomitant]

REACTIONS (2)
  - DIARRHOEA [None]
  - HAEMOGLOBIN DECREASED [None]
